FAERS Safety Report 5164280-X (Version None)
Quarter: 2006Q4

REPORT INFORMATION
  Report Type: 
  Country: None (occurrence: None)
  Receive Date: 20061205
  Receipt Date: 20061124
  Transmission Date: 20070319
  Serious: Yes (Death)
  Sender: FDA-Public Use
  Company Number: GB-JNJFOC-20061105413

PATIENT
  Age: 75 Year
  Sex: Female
  Weight: 77.6 kg

DRUGS (9)
  1. REMICADE [Suspect]
     Indication: RHEUMATOID ARTHRITIS
     Route: 042
  2. METHOTREXATE [Suspect]
     Indication: RHEUMATOID ARTHRITIS
     Route: 065
  3. ADCAL-D3 [Concomitant]
     Indication: RHEUMATOID ARTHRITIS
     Route: 065
  4. CLARITHROMYCIN [Concomitant]
     Indication: ATYPICAL MYCOBACTERIAL INFECTION
     Route: 065
  5. ETHAMBUTOL HYDROCHLORIDE [Concomitant]
     Route: 065
  6. MS CONTIN [Concomitant]
     Indication: RHEUMATOID ARTHRITIS
     Route: 065
  7. PREDNISOLONE [Concomitant]
     Indication: RHEUMATOID ARTHRITIS
     Route: 065
  8. RIFAMPICIN [Concomitant]
     Indication: ATYPICAL MYCOBACTERIAL INFECTION
     Route: 065
  9. STREPTOMYCIN [Concomitant]
     Route: 030

REACTIONS (2)
  - MYCOBACTERIUM AVIUM COMPLEX INFECTION [None]
  - PULMONARY FIBROSIS [None]
